FAERS Safety Report 19080697 (Version 7)
Quarter: 2021Q2

REPORT INFORMATION
  Report Type: Report from Study
  Country: LB (occurrence: LB)
  Receive Date: 20210331
  Receipt Date: 20210527
  Transmission Date: 20210717
  Serious: Yes (Hospitalization)
  Sender: FDA-Public Use
  Company Number: NVSC2021LB060754

PATIENT
  Age: 19 Year
  Sex: Female
  Weight: 43.4 kg

DRUGS (2)
  1. FOLIC ACID. [Concomitant]
     Active Substance: FOLIC ACID
     Indication: THALASSAEMIA
     Dosage: 5 MG
     Route: 065
     Dates: start: 20181012
  2. DEFERASIROX. [Suspect]
     Active Substance: DEFERASIROX
     Indication: THALASSAEMIA
     Dosage: 28 MG/KG (1260 MG), QD
     Route: 048
     Dates: start: 20180113, end: 20210315

REACTIONS (1)
  - Intentional overdose [Recovered/Resolved]

NARRATIVE: CASE EVENT DATE: 20210313
